FAERS Safety Report 5222676-1 (Version None)
Quarter: 2007Q1

REPORT INFORMATION
  Report Type: 
  Country: None (occurrence: None)
  Receive Date: 20061208
  Receipt Date: 20060401
  Transmission Date: 20070707
  Serious: Yes (Other)
  Sender: FDA-Public Use
  Company Number: 2005160466

PATIENT
  Age: 58 Year
  Sex: Male
  Weight: 90.7194 kg

DRUGS (2)
  1. VIAGRA [Suspect]
     Indication: ILL-DEFINED DISORDER
     Dosage: 100 MG (100 MG, 1 AS NECESSARY
     Dates: start: 19980706
  2. ASPIRIN [Suspect]

REACTIONS (5)
  - DRUG INEFFECTIVE [None]
  - HEMIPARESIS [None]
  - HYPERTENSION [None]
  - SPEECH DISORDER [None]
  - THALAMUS HAEMORRHAGE [None]
